FAERS Safety Report 9754534 (Version 1)
Quarter: 2013Q4

REPORT INFORMATION
  Report Type: Spontaneous
  Country: US (occurrence: US)
  Receive Date: 20131213
  Receipt Date: 20131213
  Transmission Date: 20140711
  Serious: No
  Sender: FDA-Public Use
  Company Number: US-GLAXOSMITHKLINE-A1000210A

PATIENT
  Age: 42 Year
  Sex: Male

DRUGS (2)
  1. NICODERM CQ CLEAR 21MG [Suspect]
     Indication: EX-TOBACCO USER
     Route: 062
     Dates: start: 20121029
  2. NICODERM CQ 14MG [Suspect]
     Indication: EX-TOBACCO USER
     Route: 062
     Dates: start: 20121101

REACTIONS (8)
  - Nausea [Unknown]
  - Heart rate increased [Unknown]
  - Drug ineffective [Unknown]
  - Drug administration error [Unknown]
  - Nicotine dependence [Unknown]
  - Feeling abnormal [Unknown]
  - Hyperhidrosis [Unknown]
  - Feeling abnormal [Unknown]
